FAERS Safety Report 24790611 (Version 5)
Quarter: 2025Q1

REPORT INFORMATION
  Report Type: Spontaneous
  Country: JP (occurrence: JP)
  Receive Date: 20241230
  Receipt Date: 20250226
  Transmission Date: 20250408
  Serious: Yes (Other)
  Sender: DERMAVANT SCIENCES
  Company Number: JP-JT-EVA202402105Dermavant Sciences Inc.

PATIENT
  Age: 4 Decade
  Sex: Male

DRUGS (8)
  1. VTAMA [Suspect]
     Active Substance: TAPINAROF
     Indication: Dermatitis atopic
     Route: 003
     Dates: start: 20241121, end: 20241206
  2. VTAMA [Suspect]
     Active Substance: TAPINAROF
     Indication: Dermatitis atopic
     Route: 003
     Dates: start: 20241121, end: 20241206
  3. VTAMA [Suspect]
     Active Substance: TAPINAROF
     Indication: Dermatitis atopic
     Route: 003
     Dates: start: 202411, end: 20241206
  4. VTAMA [Suspect]
     Active Substance: TAPINAROF
     Indication: Dermatitis atopic
     Route: 003
     Dates: start: 202411, end: 20241206
  5. DELGOCITINIB [Suspect]
     Active Substance: DELGOCITINIB
     Indication: Dermatitis atopic
     Route: 003
  6. DELGOCITINIB [Suspect]
     Active Substance: DELGOCITINIB
     Indication: Dermatitis atopic
     Route: 003
  7. DELGOCITINIB [Suspect]
     Active Substance: DELGOCITINIB
     Indication: Dermatitis atopic
     Route: 003
  8. DELGOCITINIB [Suspect]
     Active Substance: DELGOCITINIB
     Indication: Dermatitis atopic
     Route: 003

REACTIONS (5)
  - Application site oedema [Recovered/Resolved]
  - Application site acne [Unknown]
  - Skin exfoliation [Not Recovered/Not Resolved]
  - Erythema [Unknown]
  - Skin erosion [Not Recovered/Not Resolved]

NARRATIVE: CASE EVENT DATE: 20241206
